FAERS Safety Report 14574644 (Version 1)
Quarter: 2018Q1

REPORT INFORMATION
  Report Type: Spontaneous
  Country: US (occurrence: US)
  Receive Date: 20180224
  Receipt Date: 20180224
  Transmission Date: 20180509
  Serious: Yes (Hospitalization, Disabling)
  Sender: FDA-Public Use
  Company Number: None

PATIENT
  Age: 56 Year
  Sex: Male
  Weight: 78.4 kg

DRUGS (1)
  1. LEVAQUIN [Suspect]
     Active Substance: LEVOFLOXACIN
     Indication: PNEUMONIA
     Route: 048
     Dates: start: 20180213, end: 20180216

REACTIONS (8)
  - Ataxia [None]
  - Neuropathy peripheral [None]
  - Fatigue [None]
  - Urine flow decreased [None]
  - Constipation [None]
  - Limb discomfort [None]
  - Hypoaesthesia [None]
  - Urinary hesitation [None]

NARRATIVE: CASE EVENT DATE: 20180213
